FAERS Safety Report 8374785-6 (Version None)
Quarter: 2012Q2

REPORT INFORMATION
  Report Type: 
  Country: None (occurrence: None)
  Receive Date: 20120521
  Receipt Date: 20120508
  Transmission Date: 20120825
  Serious: No
  Sender: FDA-Public Use
  Company Number: US-ASTRAZENECA-2011SE63359

PATIENT
  Age: 68 Year
  Sex: Female

DRUGS (4)
  1. TOPROL-XL [Suspect]
     Dosage: ONCE A DAY
     Route: 048
  2. TOPROL-XL [Suspect]
     Dosage: THREE TIMES A DAY
     Route: 048
  3. ATACAND [Suspect]
     Route: 048
  4. TOPROL-XL [Suspect]
     Dosage: THREE TIMES A DAY
     Route: 048

REACTIONS (4)
  - SLEEP DISORDER DUE TO GENERAL MEDICAL CONDITION, INSOMNIA TYPE [None]
  - SINUSITIS [None]
  - COUGH [None]
  - INTENTIONAL DRUG MISUSE [None]
